FAERS Safety Report 6956779-8 (Version None)
Quarter: 2010Q3

REPORT INFORMATION
  Report Type: 
  Country: None (occurrence: None)
  Receive Date: 20100830
  Receipt Date: 20100812
  Transmission Date: 20110219
  Serious: Yes (Other)
  Sender: FDA-Public Use
  Company Number: PHEH2006US14750

PATIENT
  Sex: Female
  Weight: 85.261 kg

DRUGS (35)
  1. AREDIA [Suspect]
  2. ZOMETA [Suspect]
  3. HERCEPTIN [Concomitant]
  4. NAVELBINE [Concomitant]
  5. CIPROFLOXACIN [Concomitant]
  6. VITAMIN D [Concomitant]
     Indication: OSTEOPOROSIS
  7. ANTIHISTAMINES [Concomitant]
  8. ALOXI [Concomitant]
  9. KYTRIL [Concomitant]
  10. CALCIUM [Concomitant]
  11. OXYCONTIN [Concomitant]
  12. METHADONE [Concomitant]
  13. FASLODEX [Concomitant]
  14. AMOXICILLIN [Concomitant]
  15. FLEXERIL [Concomitant]
  16. LIDOCAINE [Concomitant]
  17. AUGMENTIN '125' [Concomitant]
  18. CLONAZEPAM [Concomitant]
  19. SEROQUEL [Concomitant]
     Indication: MOOD SWINGS
     Dosage: 50 MG Q PM
  20. OXYCODONE [Concomitant]
  21. EFFEXOR [Concomitant]
     Indication: DEPRESSION
     Dosage: 75 MG, BID
  22. PRILOSEC [Concomitant]
  23. LOVENOX [Concomitant]
     Dosage: BI-WEEK
  24. VITAMIN B-12 [Concomitant]
  25. FOLIC ACID [Concomitant]
  26. REQUIP [Concomitant]
  27. ETODOLAC [Concomitant]
     Dosage: 1 DF, QD
  28. ATIVAN [Concomitant]
     Indication: SLEEP DISORDER
     Dosage: 1 MG, PRN
  29. CHLORHEXIDINE GLUCONATE [Concomitant]
  30. TAMOXIFEN CITRATE [Concomitant]
  31. FEMARA [Concomitant]
  32. TAXOTERE [Concomitant]
  33. ZYPREXA [Concomitant]
     Dosage: ONE TABLET AT BEDTIME
     Route: 048
     Dates: start: 20090225
  34. ADVAIR DISKUS 100/50 [Concomitant]
     Dosage: UNK
     Dates: start: 20090123
  35. COMPAZINE [Concomitant]
     Dosage: UNK
     Dates: start: 20081223

REACTIONS (35)
  - ABDOMINAL PAIN [None]
  - ALBUMIN GLOBULIN RATIO DECREASED [None]
  - ANXIETY [None]
  - BLOOD GLUCOSE INCREASED [None]
  - BLOOD PRESSURE INCREASED [None]
  - BRONCHITIS [None]
  - DECREASED INTEREST [None]
  - DYSARTHRIA [None]
  - DYSPNOEA [None]
  - EOSINOPHIL COUNT DECREASED [None]
  - FEELING ABNORMAL [None]
  - GAIT DISTURBANCE [None]
  - GENERAL PHYSICAL HEALTH DETERIORATION [None]
  - GLOBULINS INCREASED [None]
  - HAEMATOCRIT DECREASED [None]
  - HAEMOGLOBIN DECREASED [None]
  - HEADACHE [None]
  - INTERVERTEBRAL DISC DEGENERATION [None]
  - JOINT INJURY [None]
  - LEUKODYSTROPHY [None]
  - LYMPHOCYTE COUNT DECREASED [None]
  - MONOCYTE COUNT DECREASED [None]
  - MOOD SWINGS [None]
  - NEUTROPHIL COUNT INCREASED [None]
  - OEDEMA PERIPHERAL [None]
  - OSTEONECROSIS OF JAW [None]
  - OSTEOPOROSIS [None]
  - PAIN [None]
  - RED BLOOD CELL COUNT DECREASED [None]
  - SINUSITIS [None]
  - SLEEP DISORDER [None]
  - SPINAL OSTEOARTHRITIS [None]
  - UPPER RESPIRATORY TRACT CONGESTION [None]
  - UPPER RESPIRATORY TRACT INFECTION [None]
  - WHITE BLOOD CELL COUNT INCREASED [None]
